FAERS Safety Report 9153880 (Version 1)
Quarter: 2013Q1

REPORT INFORMATION
  Report Type: Spontaneous
  Country: GB (occurrence: None)
  Receive Date: 20130207
  Receipt Date: 20130207
  Transmission Date: 20140127
  Serious: Yes (Other)
  Sender: FDA-Public Use
  Company Number: AUR-APL-2013-01221

PATIENT
  Age: 23 Year
  Sex: Female

DRUGS (8)
  1. QUETIAPINE [Suspect]
     Indication: SCHIZOAFFECTIVE DISORDER
  2. AMISULPRIDE [Suspect]
     Indication: SCHIZOAFFECTIVE DISORDER
     Dosage: 400 MG (200 MG, 2 IN 1 D), UNKNOWN
  3. OLANZAPINE (OLANZAPINE) [Suspect]
     Indication: SCHIZOAFFECTIVE DISORDER
  4. RISPERIDONE (RISPERIDONE) [Suspect]
     Indication: SCHIZOAFFECTIVE DISORDER
  5. HALOPERIDOL (HALOPERIDOL) (HALOPERIDOL) [Suspect]
     Indication: SCHIZOAFFECTIVE DISORDER
  6. SODIUM VALPROATE [Suspect]
  7. CLOZAPINE [Suspect]
     Indication: SCHIZOAFFECTIVE DISORDER
  8. FLUPENTIXOL [Suspect]
     Indication: PRODUCT USED FOR UNKNOWN INDICATION
     Route: 030

REACTIONS (17)
  - Drug ineffective [None]
  - Adverse drug reaction [None]
  - Neutropenia [None]
  - Tachycardia [None]
  - Hypotension [None]
  - Somnolence [None]
  - Salivary hypersecretion [None]
  - Weight increased [None]
  - Apathy [None]
  - Blunted affect [None]
  - Delusion [None]
  - Hallucination, auditory [None]
  - Agitation [None]
  - Anxiety [None]
  - Delusion [None]
  - Psychotic disorder [None]
  - Blood test abnormal [None]
